FAERS Safety Report 24457593 (Version 8)
Quarter: 2025Q2

REPORT INFORMATION
  Report Type: Spontaneous
  Country: US (occurrence: None)
  Receive Date: 20241018
  Receipt Date: 20250411
  Transmission Date: 20250716
  Serious: Yes (Other)
  Sender: MDD OPERATIONS
  Company Number: US-MDD US Operations-MDD202410-003779

PATIENT
  Age: 71 Year
  Sex: Male

DRUGS (16)
  1. APOKYN [Suspect]
     Active Substance: APOMORPHINE HYDROCHLORIDE
     Indication: Parkinson^s disease
  2. APOKYN [Suspect]
     Active Substance: APOMORPHINE HYDROCHLORIDE
     Indication: Dyskinesia
     Route: 058
     Dates: start: 20191009
  3. APOKYN [Suspect]
     Active Substance: APOMORPHINE HYDROCHLORIDE
     Indication: On and off phenomenon
     Dosage: 10MG/ML 3ML CARTRIDGE 1 EA CART
     Route: 058
     Dates: start: 2019
  4. APOKYN [Suspect]
     Active Substance: APOMORPHINE HYDROCHLORIDE
     Indication: Hallucination
     Route: 058
     Dates: start: 2019
  5. NUPLAZID [Suspect]
     Active Substance: PIMAVANSERIN TARTRATE
     Indication: Product used for unknown indication
  6. NUPLAZID [Suspect]
     Active Substance: PIMAVANSERIN TARTRATE
  7. PRAVASTATIN SODIUM [Concomitant]
     Active Substance: PRAVASTATIN SODIUM
  8. CLONAZEPAM [Concomitant]
     Active Substance: CLONAZEPAM
  9. FINASTERIDE [Concomitant]
     Active Substance: FINASTERIDE
  10. SERTRALINE HYDROCHLORIDE [Concomitant]
     Active Substance: SERTRALINE HYDROCHLORIDE
  11. JARDIANCE [Concomitant]
     Active Substance: EMPAGLIFLOZIN
  12. AMLODIPINE BESYLATE [Concomitant]
     Active Substance: AMLODIPINE BESYLATE
  13. TAMSULOSIN HYDROCHLORIDE [Concomitant]
     Active Substance: TAMSULOSIN HYDROCHLORIDE
  14. METFORMIN HYDROCHLORIDE [Concomitant]
     Active Substance: METFORMIN HYDROCHLORIDE
  15. PRAMIPEXOLE DIHYDROCHLORIDE [Concomitant]
     Active Substance: PRAMIPEXOLE DIHYDROCHLORIDE
  16. RYTARY [Concomitant]
     Active Substance: CARBIDOPA\LEVODOPA

REACTIONS (11)
  - Retinal detachment [Unknown]
  - Feeling abnormal [Unknown]
  - Gait disturbance [Unknown]
  - Pain [Unknown]
  - Diplopia [Recovering/Resolving]
  - Contusion [Recovered/Resolved]
  - Hallucination [Unknown]
  - Somnolence [Unknown]
  - Confusional state [Unknown]
  - Fall [Unknown]
  - Product use in unapproved indication [Unknown]

NARRATIVE: CASE EVENT DATE: 20241007
